FAERS Safety Report 5863796-8 (Version None)
Quarter: 2008Q3

REPORT INFORMATION
  Report Type: 
  Country: None (occurrence: None)
  Receive Date: 20080827
  Receipt Date: 20080820
  Transmission Date: 20090109
  Serious: Yes (Hospitalization)
  Sender: FDA-Public Use
  Company Number: ADE2008-0274

PATIENT
  Age: 48 Year
  Sex: Male

DRUGS (1)
  1. ATENOLOL [Suspect]
     Indication: HYPERTENSION
     Dosage: 50MG-ONCE -PO
     Route: 048

REACTIONS (10)
  - BODY TEMPERATURE DECREASED [None]
  - DIPLEGIA [None]
  - HYPOTENSION [None]
  - INTERVERTEBRAL DISC PROTRUSION [None]
  - LETHARGY [None]
  - POST PROCEDURAL COMPLICATION [None]
  - SPINAL COLUMN STENOSIS [None]
  - SPINAL CORD INFARCTION [None]
  - SPINAL CORD INJURY CERVICAL [None]
  - SPINAL SHOCK [None]
